FAERS Safety Report 8027313-9 (Version None)
Quarter: 2012Q1

REPORT INFORMATION
  Report Type: 
  Country: None (occurrence: None)
  Receive Date: 20120106
  Receipt Date: 20120103
  Transmission Date: 20120608
  Serious: Yes (Hospitalization)
  Sender: FDA-Public Use
  Company Number: DE-BRISTOL-MYERS SQUIBB COMPANY-16327108

PATIENT
  Age: 59 Year
  Sex: Male
  Weight: 73 kg

DRUGS (8)
  1. PARACODIN BITARTRATE TAB [Concomitant]
     Dates: start: 20111116
  2. NECITUMUMAB [Suspect]
     Indication: NON-SMALL CELL LUNG CANCER
     Dosage: LIQUID,24NOV11-15DEC11;22DAYS,16DEC11-ONG,LAST INF ON 01DEC11, 2ND INF
     Route: 042
     Dates: start: 20111124
  3. ZOPICLON [Concomitant]
     Dates: start: 20111116
  4. NOVAMINSULFON [Concomitant]
     Dates: start: 20111121, end: 20111123
  5. BUDESONIDE [Concomitant]
     Dates: start: 20110101
  6. CISPLATIN [Suspect]
     Indication: NON-SMALL CELL LUNG CANCER
     Dosage: 24NOV11-15DEC11;22DAYS,16DEC11-ONG,LAST INF ON 01DEC11, 2ND INF
     Route: 042
     Dates: start: 20111124
  7. ACETYLCYSTEINE [Concomitant]
     Dosage: ACC LONG
     Dates: start: 20111119
  8. GEMCITABINE HYDROCHLORIDE [Suspect]
     Indication: NON-SMALL CELL LUNG CANCER
     Dosage: 24NOV11-15DEC11;22DAYS,16DEC11-ONG,LAST INF ON 01DEC11, 2ND INF
     Route: 042
     Dates: start: 20111124

REACTIONS (1)
  - C-REACTIVE PROTEIN INCREASED [None]
